FAERS Safety Report 15628418 (Version 1)
Quarter: 2018Q4

REPORT INFORMATION
  Report Type: Other
  Country: CA (occurrence: CA)
  Receive Date: 20181116
  Receipt Date: 20181116
  Transmission Date: 20190205
  Serious: Yes (Death, Other)
  Sender: FDA-Public Use
  Company Number: CA-ASTELLAS-2018US049160

PATIENT
  Age: 28 Month
  Sex: Male

DRUGS (8)
  1. METHYLPREDNISOLONE. [Concomitant]
     Active Substance: METHYLPREDNISOLONE
     Route: 065
  2. TACROLIMUS. [Suspect]
     Active Substance: TACROLIMUS
     Indication: HAEMOPHAGOCYTIC LYMPHOHISTIOCYTOSIS
     Dosage: UNK, UNKNOWN FREQ.
     Route: 065
  3. DEXAMETHASONE. [Suspect]
     Active Substance: DEXAMETHASONE
     Indication: HAEMOPHAGOCYTIC LYMPHOHISTIOCYTOSIS
     Route: 065
  4. DEXAMETHASONE. [Suspect]
     Active Substance: DEXAMETHASONE
     Indication: DISEASE RECURRENCE
  5. ALEMTUZUMAB [Suspect]
     Active Substance: ALEMTUZUMAB
     Indication: HAEMOPHAGOCYTIC LYMPHOHISTIOCYTOSIS
     Dosage: UNK, UNKNOWN FREQ.
     Route: 042
  6. THYMOGLOBULIN [Suspect]
     Active Substance: LAPINE T-LYMPHOCYTE IMMUNE GLOBULIN
     Indication: HAEMOPHAGOCYTIC LYMPHOHISTIOCYTOSIS
     Dosage: UNK, UNKNOWN FREQ.
     Route: 042
  7. METHYLPREDNISOLONE. [Concomitant]
     Active Substance: METHYLPREDNISOLONE
     Indication: HAEMOPHAGOCYTIC LYMPHOHISTIOCYTOSIS
     Dosage: 0.1 MG/KG, ONCE DAILY
     Route: 065
  8. ETOPOSIDE. [Suspect]
     Active Substance: ETOPOSIDE
     Indication: HAEMOPHAGOCYTIC LYMPHOHISTIOCYTOSIS
     Dosage: UNK, UNKNOWN FREQ.
     Route: 065

REACTIONS (8)
  - Hepatic enzyme increased [Fatal]
  - Multiple organ dysfunction syndrome [Fatal]
  - Drug ineffective [Fatal]
  - Haemophagocytic lymphohistiocytosis [Fatal]
  - Product use in unapproved indication [Fatal]
  - Serum ferritin increased [Fatal]
  - Condition aggravated [Fatal]
  - Sepsis [Fatal]
